FAERS Safety Report 16126794 (Version 1)
Quarter: 2019Q1

REPORT INFORMATION
  Report Type: Spontaneous
  Country: ES (occurrence: ES)
  Receive Date: 20190328
  Receipt Date: 20190328
  Transmission Date: 20190418
  Serious: Yes (Hospitalization)
  Sender: FDA-Public Use
  Company Number: ES-ACCORD-116078

PATIENT
  Age: 79 Year
  Sex: Male

DRUGS (5)
  1. TRINOMIA [Suspect]
     Active Substance: ASPIRIN\ATORVASTATIN CALCIUM\RAMIPRIL
     Indication: MYOCARDIAL ISCHAEMIA
     Dosage: STRENGTH:  100 MG / 40 MG / 10 MG, 28 CAPSULES
     Dates: start: 20180827
  2. SILODYX [Concomitant]
     Active Substance: SILODOSIN
     Dosage: STRENGTH: 8 MG, 30 CAPSULES
  3. OPTOVITE B12 [Concomitant]
     Active Substance: CYANOCOBALAMIN
     Dosage: STRENGTH: 1000 MICROGRAMS, 5 AMPOULES OF 2 ML
  4. CLOPIDOGREL [Suspect]
     Active Substance: CLOPIDOGREL BISULFATE
     Indication: PRODUCT USED FOR UNKNOWN INDICATION
     Dosage: STRENGTH:  75 MG TABLET
     Dates: start: 20180828
  5. LEUPRORELIN/LEUPRORELIN ACETATE [Concomitant]
     Dosage: STRENGTH: 45 MG INJECTABLE PRE-FILLED SYRINGE

REACTIONS (2)
  - Anaemia [Recovered/Resolved]
  - Gastrointestinal haemorrhage [Recovered/Resolved]

NARRATIVE: CASE EVENT DATE: 20180917
